FAERS Safety Report 8409260-3 (Version None)
Quarter: 2012Q2

REPORT INFORMATION
  Report Type: 
  Country: None (occurrence: None)
  Receive Date: 20120604
  Receipt Date: 20120530
  Transmission Date: 20120825
  Serious: Yes (Other)
  Sender: FDA-Public Use
  Company Number: US-AMGEN-USASP2012005529

PATIENT
  Age: 52 Year
  Sex: Female
  Weight: 76 kg

DRUGS (5)
  1. DOXORUBICIN HCL [Suspect]
     Indication: BREAST CANCER
     Dosage: 60 MG/M2, UNK
     Route: 042
     Dates: start: 20080703
  2. CYCLOSPORINE [Suspect]
     Indication: BREAST CANCER
     Dosage: 600 MG/M2, UNK
     Route: 042
     Dates: start: 20080703
  3. BEVACIZUMAB [Suspect]
     Indication: BREAST CANCER
     Dosage: UNK
     Route: 042
     Dates: start: 20080703
  4. PACLITAXEL [Suspect]
     Indication: BREAST CANCER
     Dosage: 80 MG/M2, UNK
     Route: 042
     Dates: start: 20080703
  5. FILGRASTIM [Suspect]
     Indication: BREAST CANCER
     Dosage: 5 MUG/KG, UNK
     Route: 058
     Dates: start: 20080703

REACTIONS (1)
  - WOUND DEHISCENCE [None]
